FAERS Safety Report 8832714 (Version 1)
Quarter: 2012Q4

REPORT INFORMATION
  Report Type: 
  Country: IN (occurrence: IN)
  Receive Date: 20121010
  Receipt Date: 20121010
  Transmission Date: 20130627
  Serious: Yes (Hospitalization, Other)
  Sender: FDA-Public Use
  Company Number: IN-PAR PHARMACEUTICAL, INC-2012SCPR004642

PATIENT

DRUGS (6)
  1. RANITIDINE [Suspect]
     Indication: PRODUCT USED FOR UNKNOWN INDICATION
     Dosage: At conventional doses
     Route: 065
  2. DICLOFENAC [Suspect]
     Indication: TIBIA FRACTURE
     Dosage: 50 mg, twice daily
     Route: 065
  3. DICLOFENAC [Suspect]
     Dosage: 50 mg, twice daily
     Route: 065
  4. PARACETAMOL [Suspect]
     Indication: PRODUCT USED FOR UNKNOWN INDICATION
     Dosage: UNK, Unknown
     Route: 065
  5. AMOXICILLIN CLAVULANIC ACID [Suspect]
     Indication: SKIN ULCER
     Dosage: UNK, Unknown
     Route: 042
  6. METRONIDAZOLE [Suspect]
     Indication: PRODUCT USED FOR UNKNOWN INDICATION
     Dosage: UNK, Unknown
     Route: 042

REACTIONS (3)
  - Oligohydramnios [Unknown]
  - Placental insufficiency [Unknown]
  - Exposure during pregnancy [Unknown]
